FAERS Safety Report 17916349 (Version 4)
Quarter: 2024Q2

REPORT INFORMATION
  Report Type: Spontaneous
  Country: ES (occurrence: ES)
  Receive Date: 20200619
  Receipt Date: 20240531
  Transmission Date: 20240717
  Serious: Yes (Other)
  Sender: FDA-Public Use
  Company Number: None

PATIENT
  Age: 64 Year
  Sex: Female

DRUGS (5)
  1. TOCILIZUMAB [Suspect]
     Active Substance: TOCILIZUMAB
     Indication: COVID-19 pneumonia
     Route: 042
     Dates: start: 20200331, end: 20200331
  2. CEFTRIAXONE [Suspect]
     Active Substance: CEFTRIAXONE\CEFTRIAXONE SODIUM
     Indication: COVID-19 pneumonia
     Route: 042
     Dates: start: 20200331, end: 20200406
  3. AZITHROMYCIN DIHYDRATE [Suspect]
     Active Substance: AZITHROMYCIN DIHYDRATE
     Indication: COVID-19 pneumonia
     Route: 048
     Dates: start: 20200331, end: 20200403
  4. HYDROXYCHLOROQUINE SULFATE [Suspect]
     Active Substance: HYDROXYCHLOROQUINE SULFATE
     Indication: COVID-19 pneumonia
     Route: 048
     Dates: start: 20200331, end: 20200405
  5. ENOXAPARIN [Concomitant]
     Active Substance: ENOXAPARIN

REACTIONS (2)
  - Hypofibrinogenaemia [Recovered/Resolved]
  - Off label use [Unknown]

NARRATIVE: CASE EVENT DATE: 20200404
